FAERS Safety Report 15839417 (Version 1)
Quarter: 2019Q1

REPORT INFORMATION
  Report Type: Report from Study
  Country: IT (occurrence: IT)
  Receive Date: 20190117
  Receipt Date: 20190117
  Transmission Date: 20190417
  Serious: Yes (Other)
  Sender: FDA-Public Use
  Company Number: IT-TEVA-2019-IT-998870

PATIENT
  Age: 63 Year
  Sex: Female

DRUGS (3)
  1. FLUOROURACILE TEVA [Suspect]
     Active Substance: FLUOROURACIL
     Route: 065
  2. CALCIO LEVOFOLINATO TEVA [Suspect]
     Active Substance: LEVOLEUCOVORIN CALCIUM
     Route: 065
  3. OXALIPLATINO KABI [Suspect]
     Active Substance: OXALIPLATIN
     Route: 065

REACTIONS (5)
  - Temperature intolerance [Unknown]
  - Chest pain [Unknown]
  - Thrombocytopenia [Unknown]
  - Angina pectoris [Unknown]
  - Nausea [Unknown]

NARRATIVE: CASE EVENT DATE: 20180730
